FAERS Safety Report 9302323 (Version 1)
Quarter: 2013Q2

REPORT INFORMATION
  Report Type: Spontaneous
  Country: US (occurrence: US)
  Receive Date: 20130522
  Receipt Date: 20130522
  Transmission Date: 20140414
  Serious: No
  Sender: FDA-Public Use
  Company Number: US-009507513-1305USA009793

PATIENT
  Age: 28 Year
  Sex: Female
  Weight: 65.76 kg

DRUGS (1)
  1. IMPLANON [Suspect]
     Indication: CONTRACEPTION
     Dosage: EVERY 3
     Route: 059
     Dates: start: 20100629

REACTIONS (2)
  - Menstruation irregular [Unknown]
  - Metrorrhagia [Unknown]
